FAERS Safety Report 8244580-7 (Version None)
Quarter: 2012Q1

REPORT INFORMATION
  Report Type: 
  Country: None (occurrence: None)
  Receive Date: 20120329
  Receipt Date: 20120320
  Transmission Date: 20120608
  Serious: Yes (Hospitalization)
  Sender: FDA-Public Use
  Company Number: US-MPIJNJ-2011-01706

PATIENT
  Sex: Female
  Weight: 89.9 kg

DRUGS (28)
  1. ACYCLOVIR [Concomitant]
     Indication: PROPHYLAXIS
     Dosage: 400 MG, BID
     Route: 048
  2. PROCHLORPERAZINE MALEATE [Concomitant]
     Indication: NAUSEA
     Dosage: 10 MG, PRN
     Route: 048
  3. DEXTROSE [Concomitant]
     Indication: DIABETES MELLITUS
     Dosage: 4 G, PRN
     Route: 048
  4. HUMALOG [Concomitant]
     Indication: PRODUCT USED FOR UNKNOWN INDICATION
     Dosage: UNK UNITS, QD
  5. CLOTRIMAZOLE W/BETAMETHASONE DIPROPIONAT [Concomitant]
     Indication: PRODUCT USED FOR UNKNOWN INDICATION
     Dosage: UNK %, BID
     Route: 061
  6. MIRALAX [Concomitant]
     Indication: PRODUCT USED FOR UNKNOWN INDICATION
     Dosage: 17 G, QD
  7. COLACE [Concomitant]
     Indication: PRODUCT USED FOR UNKNOWN INDICATION
     Dosage: 100 MG, BID
     Route: 048
  8. LEVEMIR [Concomitant]
     Indication: PRODUCT USED FOR UNKNOWN INDICATION
     Dosage: 50 UNK, QD
  9. ATENOLOL [Concomitant]
     Indication: PRODUCT USED FOR UNKNOWN INDICATION
     Dosage: 50 MG, QD
  10. OS-CAL 500 + D [Concomitant]
     Indication: PRODUCT USED FOR UNKNOWN INDICATION
     Dosage: 500 MG, QD
  11. DEXAMETHASONE [Concomitant]
     Indication: PRODUCT USED FOR UNKNOWN INDICATION
     Dosage: 4 MG, CYCLIC
     Route: 048
  12. HUMALOG [Concomitant]
     Dosage: UNK UNITS, QD
  13. SIMVASTATIN [Concomitant]
     Indication: PRODUCT USED FOR UNKNOWN INDICATION
     Dosage: 20 MG, QD
  14. HYDROCHLOROTHIAZIDE [Concomitant]
     Indication: PRODUCT USED FOR UNKNOWN INDICATION
     Dosage: 25 MG, QD
  15. CALCIUM CARBONATE W/VITAMIN D      /00944201/ [Concomitant]
     Indication: PRODUCT USED FOR UNKNOWN INDICATION
     Dosage: UNK MG, QD
  16. ASPIRIN [Concomitant]
     Indication: PRODUCT USED FOR UNKNOWN INDICATION
     Dosage: 81 MG, QD
  17. VITAMIN C                          /00008001/ [Concomitant]
     Indication: PRODUCT USED FOR UNKNOWN INDICATION
     Dosage: UNK
     Route: 048
  18. OS-CAL 500 + D [Concomitant]
     Dosage: 400 UNK, UNK
  19. MYTUSSIN AC [Concomitant]
     Dosage: 10 MG, Q6HR
  20. VELCADE [Suspect]
     Indication: MULTIPLE MYELOMA
     Dosage: 1.3 MG/M2, CYCLIC
     Route: 042
     Dates: start: 20110113, end: 20110203
  21. PENICILLIN [Concomitant]
     Indication: PRODUCT USED FOR UNKNOWN INDICATION
     Dosage: 500 MG, BID
  22. NITROFURANTOIN [Concomitant]
     Indication: PRODUCT USED FOR UNKNOWN INDICATION
     Dosage: 100 MG, QD
  23. CLOTRIMAZOLE [Concomitant]
     Indication: ORAL CANDIDIASIS
     Dosage: 5 MG, PRN
     Route: 048
  24. HUMALOG [Concomitant]
     Dosage: UNK UNITS, QD
  25. LISINOPRIL [Concomitant]
     Indication: PRODUCT USED FOR UNKNOWN INDICATION
     Dosage: 20 MG, QD
  26. NORVASC [Concomitant]
     Indication: PRODUCT USED FOR UNKNOWN INDICATION
     Dosage: 5 MG, QD
  27. MYTUSSIN AC [Concomitant]
     Indication: COUGH
     Dosage: UNK MG, Q6HR
     Route: 048
  28. CALCIUM CARBONATE W/VITAMIN D      /00944201/ [Concomitant]
     Dosage: 125 UNK, UNK

REACTIONS (1)
  - ESCHERICHIA INFECTION [None]
